FAERS Safety Report 6993225-2 (Version None)
Quarter: 2010Q3

REPORT INFORMATION
  Report Type: 
  Country: None (occurrence: None)
  Receive Date: 20100917
  Receipt Date: 20090930
  Transmission Date: 20110219
  Serious: No
  Sender: FDA-Public Use
  Company Number: US-ASTRAZENECA-2009SE16868

PATIENT
  Age: 58 Year
  Sex: Female

DRUGS (5)
  1. SEROQUEL [Suspect]
     Indication: DRUG WITHDRAWAL SYNDROME
     Route: 048
     Dates: start: 20090701, end: 20090701
  2. ALMARON [Concomitant]
     Indication: CYSTITIS INTERSTITIAL
  3. VISTARIL [Concomitant]
  4. TRAZODONE HCL [Concomitant]
  5. PHENOBARBITAL [Concomitant]

REACTIONS (2)
  - EXCESSIVE EYE BLINKING [None]
  - MUSCLE TWITCHING [None]
